APPROVED DRUG PRODUCT: LEVOLEUCOVORIN CALCIUM
Active Ingredient: LEVOLEUCOVORIN CALCIUM
Strength: EQ 175MG BASE/VIAL
Dosage Form/Route: POWDER;INTRAVENOUS
Application: N208723 | Product #001
Applicant: ACTAVIS LLC
Approved: Sep 29, 2016 | RLD: Yes | RS: No | Type: DISCN